FAERS Safety Report 21547019 (Version 1)
Quarter: 2022Q4

REPORT INFORMATION
  Report Type: Spontaneous
  Country: PT (occurrence: PT)
  Receive Date: 20221103
  Receipt Date: 20221103
  Transmission Date: 20230112
  Serious: Yes (Hospitalization, Other)
  Sender: FDA-Public Use
  Company Number: None

PATIENT
  Age: 44 Year
  Sex: Male

DRUGS (15)
  1. RIFAMPIN [Suspect]
     Active Substance: RIFAMPIN
     Indication: Pulmonary tuberculosis
     Dosage: 400 MG (23/08/2022-02/09/2022); 600 MG 1X DAY
     Route: 048
     Dates: start: 20220823, end: 20220912
  2. ISONIAZID [Suspect]
     Active Substance: ISONIAZID
     Indication: Pulmonary tuberculosis
     Dosage: 300 1 X DAY 300 MG; QD
     Route: 048
     Dates: start: 20220823, end: 20220912
  3. ETHAMBUTOL HYDROCHLORIDE [Suspect]
     Active Substance: ETHAMBUTOL HYDROCHLORIDE
     Dosage: 800 MG 1 X DAY 800 MG; QD
     Route: 048
     Dates: start: 20220823, end: 20220912
  4. PYRAZINAMIDE [Suspect]
     Active Substance: PYRAZINAMIDE
     Dosage: 1000 MG 1 X DAY FROM 23/08/2022 TO 02/09/2022; THEN 1500 MG ONCE A DAY
     Route: 048
     Dates: start: 20220823, end: 20220912
  5. OLANZAPINE [Concomitant]
     Active Substance: OLANZAPINE
     Dosage: 2.5 MG; TID
     Route: 048
  6. PYRIDOXINE [Concomitant]
     Active Substance: PYRIDOXINE
     Route: 048
  7. ENOXAPARIN SODIUM [Concomitant]
     Active Substance: ENOXAPARIN SODIUM
     Dosage: 40 MG; QD
     Route: 058
  8. PIPERACILLIN SODIUM\TAZOBACTAM SODIUM [Concomitant]
     Active Substance: PIPERACILLIN SODIUM\TAZOBACTAM SODIUM
     Dosage: 4.5 G; QID
     Route: 042
     Dates: start: 20220823
  9. DIAZEPAM [Concomitant]
     Active Substance: DIAZEPAM
     Route: 048
  10. BUPRENORPHINE [Concomitant]
     Active Substance: BUPRENORPHINE
     Route: 048
  11. MORPHINE [Concomitant]
     Active Substance: MORPHINE
     Route: 042
  12. BROMETO DE IPRATROPIO [Concomitant]
     Route: 055
  13. BUDESONIDO [Concomitant]
     Route: 055
  14. PANTOPRAZOLE [Concomitant]
     Active Substance: PANTOPRAZOLE
     Route: 048
  15. OXAZEPAM [Concomitant]
     Active Substance: OXAZEPAM
     Route: 048

REACTIONS (1)
  - Hepatotoxicity [Unknown]

NARRATIVE: CASE EVENT DATE: 20220912
